FAERS Safety Report 20779129 (Version 1)
Quarter: 2022Q2

REPORT INFORMATION
  Report Type: Spontaneous
  Country: US (occurrence: US)
  Receive Date: 20220503
  Receipt Date: 20220503
  Transmission Date: 20220721
  Serious: Yes (Other)
  Sender: FDA-Public Use
  Company Number: US-PFIZER INC-202200575836

PATIENT
  Age: 24 Year
  Sex: Male
  Weight: 72.57 kg

DRUGS (4)
  1. PROTONIX [Suspect]
     Active Substance: PANTOPRAZOLE SODIUM
     Indication: Gastrooesophageal reflux disease
     Dosage: UNK, 2X/DAY
     Dates: start: 2005, end: 2007
  2. PRILOSEC [Suspect]
     Active Substance: OMEPRAZOLE MAGNESIUM
     Dosage: UNK
  3. GABAPENTIN [Concomitant]
     Active Substance: GABAPENTIN
     Dosage: UNK
  4. DIAZEPAM [Concomitant]
     Active Substance: DIAZEPAM
     Indication: Seizure
     Dosage: UNK

REACTIONS (10)
  - Jaw fracture [Unknown]
  - Rheumatoid arthritis [Unknown]
  - Brain stem syndrome [Unknown]
  - Head discomfort [Unknown]
  - Pain [Unknown]
  - Ocular neoplasm [Unknown]
  - Hypoaesthesia [Unknown]
  - Cerebral disorder [Unknown]
  - Protein total abnormal [Unknown]
  - Off label use [Unknown]

NARRATIVE: CASE EVENT DATE: 20050101
